FAERS Safety Report 21052315 (Version 1)
Quarter: 2022Q3

REPORT INFORMATION
  Report Type: Spontaneous
  Country: US (occurrence: US)
  Receive Date: 20220707
  Receipt Date: 20220707
  Transmission Date: 20221027
  Serious: No
  Sender: FDA-Public Use
  Company Number: US-PERRIGO-21US028286

PATIENT
  Sex: Male

DRUGS (1)
  1. PREVACID 24 HR [Suspect]
     Active Substance: LANSOPRAZOLE
     Indication: Accidental exposure to product
     Dosage: 30 MG, SINGLE
     Route: 048
     Dates: start: 20210917, end: 20210917

REACTIONS (2)
  - Incorrect dose administered [Recovered/Resolved]
  - Wrong product administered [Recovered/Resolved]

NARRATIVE: CASE EVENT DATE: 20210917
